FAERS Safety Report 7103253-4 (Version None)
Quarter: 2010Q4

REPORT INFORMATION
  Report Type: 
  Country: None (occurrence: None)
  Receive Date: 20101115
  Receipt Date: 20101101
  Transmission Date: 20110411
  Serious: Yes (Hospitalization, Other)
  Sender: FDA-Public Use
  Company Number: JP-BAYER-JP-SHR-03-011730

PATIENT
  Age: 26 Year
  Sex: Female
  Weight: 50 kg

DRUGS (9)
  1. BETAFERON [Suspect]
     Indication: RELAPSING-REMITTING MULTIPLE SCLEROSIS
     Dosage: UNIT DOSE: 4 MIU
     Route: 058
     Dates: start: 20020724, end: 20020731
  2. BETAFERON [Suspect]
     Dosage: UNIT DOSE: 8 MIU
     Route: 058
     Dates: start: 20020801, end: 20021107
  3. CYANOCOBALAMIN [Concomitant]
     Dosage: UNIT DOSE: 500 ?G
     Route: 048
     Dates: start: 20020701
  4. MYONAL [Concomitant]
     Indication: MUSCULOSKELETAL STIFFNESS
     Dosage: UNIT DOSE: 50 MG
     Route: 048
     Dates: start: 20020715, end: 20030101
  5. SELBEX [Concomitant]
     Indication: GASTRITIS PROPHYLAXIS
     Dosage: UNIT DOSE: 50 MG
     Route: 048
     Dates: start: 20020715, end: 20030101
  6. MYSLEE [Concomitant]
     Indication: INSOMNIA
     Dosage: UNIT DOSE: 10 MG
     Route: 048
     Dates: start: 20020708, end: 20040101
  7. SILECE [Concomitant]
     Indication: INSOMNIA
     Dosage: UNIT DOSE: 2 MG
     Route: 048
     Dates: start: 20020730
  8. PAXIL [Concomitant]
     Indication: ANXIETY
     Dosage: UNIT DOSE: 10 MG
     Route: 048
     Dates: start: 20020730, end: 20020801
  9. PAXIL [Concomitant]
     Dosage: UNIT DOSE: 20 MG
     Route: 048
     Dates: start: 20020802, end: 20030101

REACTIONS (5)
  - MENTAL IMPAIRMENT [None]
  - MYELITIS TRANSVERSE [None]
  - NEUROMYELITIS OPTICA [None]
  - PSYCHOTIC DISORDER [None]
  - QUADRIPLEGIA [None]
